FAERS Safety Report 14111659 (Version 1)
Quarter: 2017Q4

REPORT INFORMATION
  Report Type: Report from Study
  Country: GB (occurrence: GB)
  Receive Date: 20171020
  Receipt Date: 20171020
  Transmission Date: 20180321
  Serious: Yes (Other)
  Sender: FDA-Public Use
  Company Number: GB-UCBSA-2017041400

PATIENT
  Age: 73 Year
  Sex: Female

DRUGS (6)
  1. STALEVO [Concomitant]
     Active Substance: CARBIDOPA\ENTACAPONE\LEVODOPA
     Indication: PRODUCT USED FOR UNKNOWN INDICATION
     Dosage: 150 MG
  2. CARBIDOPA W/LEVODOPA [Concomitant]
     Active Substance: CARBIDOPA\LEVODOPA
     Indication: PRODUCT USED FOR UNKNOWN INDICATION
  3. RASAGILINE. [Concomitant]
     Active Substance: RASAGILINE
     Indication: PRODUCT USED FOR UNKNOWN INDICATION
  4. AMANTADINE. [Concomitant]
     Active Substance: AMANTADINE HYDROCHLORIDE
     Indication: PRODUCT USED FOR UNKNOWN INDICATION
     Dosage: UNK
  5. ROTIGOTINE [Suspect]
     Active Substance: ROTIGOTINE
     Indication: PARKINSON^S DISEASE
     Dosage: UNK
  6. CLONAZEPAM. [Concomitant]
     Active Substance: CLONAZEPAM
     Indication: PRODUCT USED FOR UNKNOWN INDICATION

REACTIONS (23)
  - Dysphagia [Unknown]
  - Choking [Unknown]
  - Malaise [Unknown]
  - Constipation [Unknown]
  - Dizziness [Unknown]
  - Speech disorder [Unknown]
  - Stress [Unknown]
  - Gastrointestinal motility disorder [Unknown]
  - Sensory disturbance [Unknown]
  - Nocturia [Unknown]
  - Micturition urgency [Unknown]
  - Nightmare [Unknown]
  - Anxiety [Unknown]
  - Panic disorder [Unknown]
  - Sleep talking [Unknown]
  - Asthenia [Unknown]
  - Depressed mood [Unknown]
  - Salivary hypersecretion [Unknown]
  - Balance disorder [Unknown]
  - Tremor [Unknown]
  - Vomiting [Unknown]
  - Memory impairment [Unknown]
  - Disturbance in attention [Unknown]
